FAERS Safety Report 5282899-2 (Version None)
Quarter: 2007Q1

REPORT INFORMATION
  Report Type: 
  Country: None (occurrence: None)
  Receive Date: 20070327
  Receipt Date: 20070312
  Transmission Date: 20070707
  Serious: Yes (Death)
  Sender: FDA-Public Use
  Company Number: CIP07000562

PATIENT
  Age: 10 Year
  Sex: Female

DRUGS (5)
  1. DANTRIUM [Suspect]
     Indication: HYPERTHERMIA MALIGNANT
     Dosage: 40 MG DAILY, IV NOS
     Route: 042
     Dates: start: 20070310, end: 20070310
  2. NICARDIPINE HYDROCHLORIDE [Suspect]
     Dosage: UNK, UNK, IV NOS
     Route: 042
     Dates: end: 20070310
  3. DOPAMINE /00360702/ (DOPAMINE HYDROCHLORIDE) [Concomitant]
  4. PRECEDEX [Concomitant]
  5. DIPRIVAN [Concomitant]

REACTIONS (3)
  - ARRHYTHMIA [None]
  - C-REACTIVE PROTEIN INCREASED [None]
  - CARDIAC FAILURE [None]
